FAERS Safety Report 16923015 (Version 2)
Quarter: 2019Q4

REPORT INFORMATION
  Report Type: Spontaneous
  Country: FR (occurrence: FR)
  Receive Date: 20191016
  Receipt Date: 20191225
  Transmission Date: 20200122
  Serious: Yes (Life-Threatening)
  Sender: FDA-Public Use
  Company Number: FR-TEVA-2019-FR-1120118

PATIENT
  Age: 88 Year
  Sex: Female
  Weight: 96 kg

DRUGS (14)
  1. LEVOTHYROX [Concomitant]
     Active Substance: LEVOTHYROXINE
  2. METOPROLOL (SUCCINATE DE) [Concomitant]
  3. IRBESARTAN. [Suspect]
     Active Substance: IRBESARTAN
     Indication: HYPERTENSION
     Dosage: 300 MG
     Route: 048
  4. TOUJEO [Concomitant]
     Active Substance: INSULIN GLARGINE
  5. FUROSEMIDE. [Suspect]
     Active Substance: FUROSEMIDE
     Indication: HYPERTENSION
     Dosage: 40 MG
     Route: 048
  6. COLCHICINE. [Suspect]
     Active Substance: COLCHICINE
     Indication: CRYSTAL ARTHROPATHY
     Route: 048
     Dates: start: 20190820, end: 20190827
  7. GLIMEPIRIDE. [Concomitant]
     Active Substance: GLIMEPIRIDE
  8. PYOSTACINE [Suspect]
     Active Substance: PRISTINAMYCIN
     Indication: ERYSIPELAS
     Dosage: 4 DF
     Route: 048
     Dates: start: 20190820, end: 20190901
  9. DAFALGAN [Concomitant]
     Active Substance: ACETAMINOPHEN
  10. DULOXETINE (CHLORHYDRATE DE) [Concomitant]
     Active Substance: DULOXETINE
  11. ASPIRINE PROTECT [Suspect]
     Active Substance: ASPIRIN
     Indication: PRODUCT USED FOR UNKNOWN INDICATION
     Route: 048
  12. LANSOPRAZOLE. [Concomitant]
     Active Substance: LANSOPRAZOLE
  13. LORMETAZEPAM [Concomitant]
     Active Substance: LORMETAZEPAM
  14. CHLORHYDRATE DE METFORMINE [Concomitant]
     Active Substance: METFORMIN HYDROCHLORIDE

REACTIONS (1)
  - Acute kidney injury [Recovering/Resolving]

NARRATIVE: CASE EVENT DATE: 20190826
